FAERS Safety Report 8801719 (Version 2)
Quarter: 2012Q4

REPORT INFORMATION
  Report Type: 
  Country: FR (occurrence: FR)
  Receive Date: 20120921
  Receipt Date: 20121003
  Transmission Date: 20130627
  Serious: Yes (Other)
  Sender: FDA-Public Use
  Company Number: FR-ELI_LILLY_AND_COMPANY-FR201209002721

PATIENT
  Sex: Male

DRUGS (1)
  1. ZYPREXA VELOTAB [Suspect]
     Indication: PSYCHOTIC DISORDER
     Dosage: 10 mg, qd
     Route: 048
     Dates: start: 201202, end: 20120626

REACTIONS (1)
  - Neutropenia [Not Recovered/Not Resolved]
